FAERS Safety Report 6325916-0 (Version None)
Quarter: 2009Q3

REPORT INFORMATION
  Report Type: 
  Country: None (occurrence: None)
  Receive Date: 20090824
  Receipt Date: 20090819
  Transmission Date: 20100115
  Serious: Yes (Hospitalization, Other)
  Sender: FDA-Public Use
  Company Number: ES-ROXANE LABORATORIES, INC.-2009-RO-00844RO

PATIENT
  Age: 79 Year
  Sex: Female

DRUGS (5)
  1. RISPERIDONE [Suspect]
     Indication: DELUSIONAL DISORDER, PERSECUTORY TYPE
  2. HALOPERIDOL [Suspect]
     Indication: DELUSIONAL DISORDER, PERSECUTORY TYPE
  3. OLANZAPINE [Suspect]
     Indication: DELUSIONAL DISORDER, PERSECUTORY TYPE
  4. QUETIAPINE [Concomitant]
     Indication: TARDIVE DYSKINESIA
     Dosage: 75 MG
  5. TETRABENAZINE [Concomitant]
     Indication: TARDIVE DYSKINESIA
     Dosage: 25 MG

REACTIONS (2)
  - CEREBRAL ATROPHY [None]
  - TARDIVE DYSKINESIA [None]
